FAERS Safety Report 21149453 (Version 1)
Quarter: 2022Q3

REPORT INFORMATION
  Report Type: Spontaneous
  Country: FR (occurrence: FR)
  Receive Date: 20220729
  Receipt Date: 20220729
  Transmission Date: 20221027
  Serious: Yes (Other)
  Sender: FDA-Public Use
  Company Number: None

PATIENT
  Age: 48 Year
  Sex: Female
  Weight: 90 kg

DRUGS (1)
  1. KYLEENA [Suspect]
     Active Substance: LEVONORGESTREL
     Indication: Intrauterine contraception
     Dosage: 17.5?G/DAY
     Route: 015
     Dates: start: 20210111, end: 20220405

REACTIONS (7)
  - Suicidal ideation [Recovered/Resolved]
  - Disturbance in attention [Recovered/Resolved]
  - Anxiety [Recovered/Resolved]
  - Fatigue [Recovered/Resolved]
  - Weight increased [Recovered/Resolved]
  - Alopecia [Recovering/Resolving]
  - Breast pain [Recovered/Resolved]

NARRATIVE: CASE EVENT DATE: 20210101
